FAERS Safety Report 22229770 (Version 1)
Quarter: 2023Q2

REPORT INFORMATION
  Report Type: Report from Study
  Country: US (occurrence: None)
  Receive Date: 20230419
  Receipt Date: 20230419
  Transmission Date: 20230722
  Serious: Yes (Other)
  Sender: FDA-Public Use
  Company Number: 2023A073363

PATIENT
  Sex: Male
  Weight: 85.3 kg

DRUGS (1)
  1. FARXIGA [Suspect]
     Active Substance: DAPAGLIFLOZIN PROPANEDIOL
     Indication: Type 2 diabetes mellitus
     Route: 048
     Dates: start: 201503

REACTIONS (3)
  - Joint swelling [Recovered/Resolved]
  - Arthritis infective [Recovered/Resolved]
  - Injury [Recovered/Resolved]
